FAERS Safety Report 9931053 (Version 3)
Quarter: 2014Q1

REPORT INFORMATION
  Report Type: Spontaneous
  Country: FR (occurrence: FR)
  Receive Date: 20140227
  Receipt Date: 20140320
  Transmission Date: 20141002
  Serious: Yes (Other)
  Sender: FDA-Public Use
  Company Number: PHHY2014FR015704

PATIENT
  Sex: Male

DRUGS (6)
  1. FORADIL [Suspect]
     Dosage: 12 UG, UNK
     Route: 055
  2. MIFLONIL [Suspect]
     Dosage: UNK UKN, UNK
     Route: 055
  3. VENTOLINE [Concomitant]
     Dosage: UNK UKN, UNK
  4. MECIR [Concomitant]
     Dosage: UNK UKN, UNK
  5. PLAVIX [Concomitant]
     Dosage: UNK UKN, UNK
  6. TRIATEC [Concomitant]
     Dosage: 5 MG, UNK

REACTIONS (4)
  - Device malfunction [Unknown]
  - Drug ineffective [Not Recovered/Not Resolved]
  - Incorrect dose administered [Unknown]
  - Wrong device used [Unknown]
